FAERS Safety Report 4464556-5 (Version None)
Quarter: 2004Q3

REPORT INFORMATION
  Report Type: 
  Country: None (occurrence: None)
  Receive Date: 20040929
  Receipt Date: 20040820
  Transmission Date: 20050211
  Serious: Yes (Life-Threatening)
  Sender: FDA-Public Use
  Company Number: F01200402559

PATIENT
  Age: 75 Year
  Sex: Male
  Weight: 74 kg

DRUGS (17)
  1. OXALIPLATIN- SOLUTION - 130 MG/M2 [Suspect]
     Indication: NON-SMALL CELL LUNG CANCER
     Dosage: 130 MG/M2 Q3W - INTRAVENOUS NOS
     Route: 042
     Dates: start: 20040716, end: 20040716
  2. GEMCITABINE - SOLUTION - 1000 MG/M2 [Suspect]
     Dosage: 1000 MG/M2 Q3W - INTRAVENOUS NOS
     Route: 042
     Dates: start: 20040723, end: 20040723
  3. DEXAMETHASONE [Concomitant]
  4. LORAZEPAM [Concomitant]
  5. DOLASETRON MESILATE [Concomitant]
  6. RAMIPRIL [Concomitant]
  7. GLIBENCLAMIDE [Concomitant]
  8. ROSIGLITAZONE MALEATE [Concomitant]
  9. ALLOPURINOL [Concomitant]
  10. TORSEMIDE [Concomitant]
  11. MONTELUKAST SODIUM [Concomitant]
  12. ATORVASTATIN CALCIUM [Concomitant]
  13. POTASSIUM CHLORIDE [Concomitant]
  14. COMBIVENT [Concomitant]
  15. SALMETEROL XINAFOATE [Concomitant]
  16. OXYCONTIN [Concomitant]
  17. VICODIN [Concomitant]

REACTIONS (14)
  - ACUTE RESPIRATORY FAILURE [None]
  - ANAEMIA [None]
  - BLOOD ALBUMIN DECREASED [None]
  - BLOOD CALCIUM DECREASED [None]
  - BLOOD LACTATE DEHYDROGENASE INCREASED [None]
  - BLOOD MAGNESIUM DECREASED [None]
  - BUNDLE BRANCH BLOCK RIGHT [None]
  - CARDIAC FAILURE CONGESTIVE [None]
  - HYPOXIA [None]
  - MENTAL STATUS CHANGES [None]
  - PULMONARY HILUM MASS [None]
  - QRS AXIS ABNORMAL [None]
  - RESPIRATORY ACIDOSIS [None]
  - THROMBOCYTOPENIA [None]
